FAERS Safety Report 14844839 (Version 2)
Quarter: 2018Q2

REPORT INFORMATION
  Report Type: Report from Study
  Country: VE (occurrence: VE)
  Receive Date: 20180504
  Receipt Date: 20180509
  Transmission Date: 20180711
  Serious: Yes (Other)
  Sender: FDA-Public Use
  Company Number: PHHY2018VE075666

PATIENT
  Age: 45 Year
  Sex: Female
  Weight: 50 kg

DRUGS (4)
  1. TASIGNA [Suspect]
     Active Substance: NILOTINIB
     Dosage: 400 MG, QD
     Route: 048
     Dates: end: 201712
  2. GRANOCYTE [Concomitant]
     Active Substance: LENOGRASTIM
     Indication: PROPHYLAXIS
     Route: 065
  3. EUTIROX [Concomitant]
     Active Substance: LEVOTHYROXINE SODIUM
     Indication: THYROID DISORDER
     Route: 065
  4. TASIGNA [Suspect]
     Active Substance: NILOTINIB
     Indication: CHRONIC MYELOID LEUKAEMIA
     Dosage: 800 MG, QD
     Route: 048
     Dates: start: 20161119

REACTIONS (12)
  - Asthenia [Unknown]
  - Erythema [Unknown]
  - Chronic myeloid leukaemia recurrent [Unknown]
  - Malaise [Unknown]
  - Weight decreased [Unknown]
  - Toxicity to various agents [Unknown]
  - Haemoglobin decreased [Unknown]
  - Skin discolouration [Unknown]
  - Neutrophil count abnormal [Unknown]
  - White blood cell count increased [Unknown]
  - White blood cell disorder [Unknown]
  - Pyrexia [Unknown]

NARRATIVE: CASE EVENT DATE: 201701
